FAERS Safety Report 8154890-X (Version None)
Quarter: 2012Q1

REPORT INFORMATION
  Report Type: 
  Country: None (occurrence: None)
  Receive Date: 20120221
  Receipt Date: 20120214
  Transmission Date: 20120608
  Serious: Yes (Death, Other)
  Sender: FDA-Public Use
  Company Number: PHHY2011ZA25437

PATIENT
  Age: 56 Year
  Sex: Male

DRUGS (4)
  1. TASIGNA [Suspect]
     Dosage: 400 MG, UNK
     Dates: start: 20110317
  2. TASIGNA [Suspect]
     Dosage: 400 MG, UNK
  3. TASIGNA [Suspect]
     Dosage: 400 MG, UNK
     Dates: start: 20110311
  4. TASIGNA [Suspect]
     Dosage: 400 MG, UNK
     Dates: start: 20110322

REACTIONS (7)
  - CEREBROVASCULAR DISORDER [None]
  - DEATH [None]
  - RASH PRURITIC [None]
  - DISEASE PROGRESSION [None]
  - HEADACHE [None]
  - BLAST CELL CRISIS [None]
  - OVERWEIGHT [None]
